FAERS Safety Report 20934280 (Version 1)
Quarter: 2022Q2

REPORT INFORMATION
  Report Type: Spontaneous
  Country: US (occurrence: US)
  Receive Date: 20220608
  Receipt Date: 20220608
  Transmission Date: 20220720
  Serious: Yes (Other)
  Sender: FDA-Public Use
  Company Number: US-BRISTOL-MYERS SQUIBB COMPANY-2022-048764

PATIENT
  Age: 69 Year
  Sex: Female

DRUGS (1)
  1. POMALYST [Suspect]
     Active Substance: POMALIDOMIDE
     Indication: Plasma cell myeloma
     Dosage: TAKE 1 CAPSULE BY MOUTH EVERY DAY ?FOR 1 WEEK ON AND 1 WEEK OFF ?AS DIRECTED . ?REPEAT
     Route: 048
     Dates: start: 20170307

REACTIONS (2)
  - Neuropathy peripheral [Not Recovered/Not Resolved]
  - Intentional product use issue [Unknown]
